FAERS Safety Report 24146562 (Version 1)
Quarter: 2024Q3

REPORT INFORMATION
  Report Type: Spontaneous
  Country: HU (occurrence: HU)
  Receive Date: 20240729
  Receipt Date: 20240729
  Transmission Date: 20241016
  Serious: Yes (Other)
  Sender: MYLAN
  Company Number: HU-MYLANLABS-2024M1068860

PATIENT
  Age: 53 Year
  Sex: Female

DRUGS (1)
  1. INSPRA [Suspect]
     Active Substance: EPLERENONE
     Indication: Chorioretinitis
     Dosage: 25 MILLIGRAM, QD
     Route: 065
     Dates: start: 20240531

REACTIONS (1)
  - Off label use [Unknown]

NARRATIVE: CASE EVENT DATE: 20240531
